FAERS Safety Report 6426020-3 (Version None)
Quarter: 2009Q4

REPORT INFORMATION
  Report Type: 
  Country: None (occurrence: None)
  Receive Date: 20091104
  Receipt Date: 20091023
  Transmission Date: 20100525
  Serious: Yes (Other)
  Sender: FDA-Public Use
  Company Number: JP-JNJFOC-20091003968

PATIENT
  Sex: Female
  Weight: 44 kg

DRUGS (7)
  1. DOXORUBICIN HCL [Suspect]
     Route: 042
  2. DOXORUBICIN HCL [Suspect]
     Indication: MALIGNANT PERITONEAL NEOPLASM
     Route: 042
  3. DEXAMETHASONE [Concomitant]
     Indication: PROPHYLAXIS
     Route: 048
  4. VITAMEDIN [Concomitant]
     Indication: PROPHYLAXIS
     Route: 048
  5. HEPARIN [Concomitant]
     Indication: PROPHYLAXIS
     Route: 061
  6. SODIUM GUALENATE [Concomitant]
     Indication: PROPHYLAXIS
     Route: 002
  7. TRIAMCINOLONE ACETONIDE [Concomitant]
     Indication: DRUG USE FOR UNKNOWN INDICATION
     Route: 061

REACTIONS (1)
  - LUNG DISORDER [None]
